FAERS Safety Report 17871470 (Version 1)
Quarter: 2020Q2

REPORT INFORMATION
  Report Type: Spontaneous
  Country: US (occurrence: US)
  Receive Date: 20200607
  Receipt Date: 20200607
  Transmission Date: 20200714
  Serious: No
  Sender: FDA-Public Use
  Company Number: None

PATIENT

DRUGS (2)
  1. NALOXONE [Suspect]
     Active Substance: NALOXONE
  2. UNABLE TO IDENTIFY PRODUCT (JUICE) [Concomitant]

REACTIONS (1)
  - Product label issue [None]

NARRATIVE: CASE EVENT DATE: 20200605
